FAERS Safety Report 8390676-9 (Version None)
Quarter: 2012Q2

REPORT INFORMATION
  Report Type: 
  Country: None (occurrence: None)
  Receive Date: 20120529
  Receipt Date: 20120521
  Transmission Date: 20120825
  Serious: Yes (Death, Life-Threatening, Hospitalization, Other)
  Sender: FDA-Public Use
  Company Number: CA-BRISTOL-MYERS SQUIBB COMPANY-15578800

PATIENT
  Age: 36 Year
  Sex: Female
  Weight: 83 kg

DRUGS (15)
  1. CISPLATIN [Suspect]
     Indication: NON-SMALL CELL LUNG CANCER
     Dosage: 10MAY-14JUN10=36DAYS,19JUL-26JUL10=8 DAYS,
     Route: 042
     Dates: start: 20100510, end: 20100826
  2. DEXAMETHASONE [Concomitant]
     Dates: start: 20100401
  3. GRAVOL TAB [Concomitant]
     Dates: start: 20100728
  4. LORAZEPAM [Concomitant]
     Dates: start: 20100507
  5. DAPOXETINE HYDROCHLORIDE [Concomitant]
     Indication: COUGH
  6. HYDROMORPHONE HCL [Concomitant]
     Dates: start: 20100401
  7. ONDANSETRON [Concomitant]
     Dates: start: 20100728
  8. FENTANYL [Concomitant]
     Dates: start: 20100512
  9. FOLIC ACID [Concomitant]
     Dates: start: 20100504
  10. SENOKOT [Concomitant]
     Dates: start: 20100401
  11. PROCHLORPERAZINE [Concomitant]
     Dates: start: 20100511
  12. COLACE [Concomitant]
     Dates: start: 20100301
  13. OMEPRAZOLE (PRISOLEC) [Concomitant]
     Dates: start: 20100616
  14. ETOPOSIDE [Suspect]
     Indication: NON-SMALL CELL LUNG CANCER
     Dosage: 10MAY-11JUN10=33DAYS,19JUL-23JUL10=5 DAYS,
     Route: 042
     Dates: start: 20100510, end: 20100826
  15. VITAMIN B-12 [Concomitant]

REACTIONS (2)
  - BRONCHOPLEURAL FISTULA [None]
  - PNEUMONIA BACTERIAL [None]
